FAERS Safety Report 5607125-3 (Version None)
Quarter: 2008Q1

REPORT INFORMATION
  Report Type: 
  Country: None (occurrence: None)
  Receive Date: 20080129
  Receipt Date: 20080117
  Transmission Date: 20080703
  Serious: Yes (Other)
  Sender: FDA-Public Use
  Company Number: CL-PFIZER INC-2008006093

PATIENT
  Sex: Female
  Weight: 53 kg

DRUGS (5)
  1. RELPAX [Suspect]
     Indication: HEADACHE
     Route: 048
  2. RELPAX [Suspect]
     Indication: MIGRAINE
  3. ORAL CONTRACEPTIVE NOS [Concomitant]
     Route: 048
  4. ACETAMINOPHEN [Concomitant]
     Route: 048
     Dates: start: 20080116, end: 20080116
  5. GUARANA [Concomitant]

REACTIONS (7)
  - ASTHENIA [None]
  - HYPERHIDROSIS [None]
  - PALLOR [None]
  - PALPITATIONS [None]
  - PRESYNCOPE [None]
  - TACHYCARDIA [None]
  - TACHYPNOEA [None]
